FAERS Safety Report 7127299-5 (Version None)
Quarter: 2010Q4

REPORT INFORMATION
  Report Type: 
  Country: None (occurrence: None)
  Receive Date: 20101129
  Receipt Date: 20100415
  Transmission Date: 20110411
  Serious: No
  Sender: FDA-Public Use
  Company Number: US-PFIZER INC-2010050183

PATIENT
  Sex: Male
  Weight: 90.703 kg

DRUGS (7)
  1. VIAGRA [Suspect]
     Indication: ERECTILE DYSFUNCTION
     Dosage: 100 MG, AS NEEDED
     Route: 048
  2. COZAAR [Suspect]
     Indication: HYPERTENSION
     Dosage: UNK
     Route: 048
     Dates: end: 20090101
  3. INSULIN [Concomitant]
     Indication: DIABETES MELLITUS
     Dosage: 40 IU AT DAY AND 35 IU AT NIGHT FOR DIABETES
  4. ACETYLSALICYLIC ACID [Concomitant]
     Indication: CARDIOVASCULAR EVENT PROPHYLAXIS
     Dosage: 81 MG, 1X/DAY
     Route: 048
  5. DOXYCYCLINE [Concomitant]
     Indication: BRONCHITIS CHRONIC
     Dosage: 100 MG, UNK
  6. LISINOPRIL [Concomitant]
     Indication: HYPERTENSION
     Dosage: 20 MG, 1X/DAY
  7. HYDROMORPHONE [Concomitant]
     Indication: PAIN
     Dosage: 2 MG, UNK

REACTIONS (1)
  - DRUG INEFFECTIVE [None]
